FAERS Safety Report 9904907 (Version 2)
Quarter: 2014Q2

REPORT INFORMATION
  Report Type: Spontaneous
  Country: US (occurrence: US)
  Receive Date: 20140218
  Receipt Date: 20140505
  Transmission Date: 20141212
  Serious: Yes (Hospitalization, Disabling, Other)
  Sender: FDA-Public Use
  Company Number: US-BAYER-2014-025186

PATIENT
  Age: 41 Year
  Sex: Female
  Weight: 58.96 kg

DRUGS (3)
  1. MIRENA [Suspect]
     Indication: CONTRACEPTION
     Dosage: 20 MCG/24HR, CONT
     Route: 015
     Dates: start: 200911, end: 20130301
  2. CLARITIN [Concomitant]
     Dosage: 10 MG, UNK
  3. PEPCID [Concomitant]
     Dosage: 20 MG, UNK

REACTIONS (12)
  - Embedded device [None]
  - Ectopic pregnancy with contraceptive device [Recovered/Resolved]
  - Drug ineffective [None]
  - Procedural pain [None]
  - Emotional distress [None]
  - Injury [None]
  - Anxiety [None]
  - Pain [None]
  - Deformity [None]
  - Anhedonia [None]
  - General physical health deterioration [None]
  - Device difficult to use [None]
